FAERS Safety Report 12167809 (Version 1)
Quarter: 2016Q1

REPORT INFORMATION
  Report Type: Report from Study
  Country: US (occurrence: US)
  Receive Date: 20160310
  Receipt Date: 20160310
  Transmission Date: 20160526
  Serious: Yes (Other)
  Sender: FDA-Public Use
  Company Number: US-ASTRAZENECA-2016SE23440

PATIENT
  Sex: Female

DRUGS (3)
  1. BRILINTA [Suspect]
     Active Substance: TICAGRELOR
     Route: 048
  2. ASPIRIN. [Concomitant]
     Active Substance: ASPIRIN
     Dosage: ONE TIME A DAY
  3. ASPIRIN. [Concomitant]
     Active Substance: ASPIRIN
     Dosage: TWO TIMES A DAY.

REACTIONS (4)
  - Contusion [Unknown]
  - Fall [Unknown]
  - Syncope [Unknown]
  - Limb injury [Unknown]
